FAERS Safety Report 8272326-5 (Version None)
Quarter: 2012Q2

REPORT INFORMATION
  Report Type: 
  Country: None (occurrence: None)
  Receive Date: 20120410
  Receipt Date: 20120406
  Transmission Date: 20120825
  Serious: Yes (Death, Hospitalization)
  Sender: FDA-Public Use
  Company Number: BG-GENZYME-FLUD-1001451

PATIENT
  Sex: Male
  Weight: 87 kg

DRUGS (6)
  1. ENALAPRIL MALEATE [Concomitant]
     Indication: PRODUCT USED FOR UNKNOWN INDICATION
     Dosage: UNK
     Route: 065
     Dates: start: 20010101
  2. FLUDARA [Suspect]
     Dosage: 25 MG/M2, QD
     Route: 042
     Dates: start: 20111221, end: 20111223
  3. FLUDARA [Suspect]
     Dosage: 25 MG/M2
     Route: 042
     Dates: start: 20120119, end: 20120121
  4. CYCLOPHOSPHAMIDE [Suspect]
     Indication: CHRONIC LYMPHOCYTIC LEUKAEMIA
     Dosage: 250 MG/M2 DAYS 1 TO 3 EVERY 28 DAYS FOR 6 CYCLES
     Route: 042
     Dates: start: 20111123
  5. FLUDARA [Suspect]
     Indication: CHRONIC LYMPHOCYTIC LEUKAEMIA
     Dosage: 25 MG/M2
     Route: 042
     Dates: start: 20111123, end: 20111125
  6. INDAPAMIDE [Concomitant]
     Indication: PRODUCT USED FOR UNKNOWN INDICATION
     Dosage: UNK
     Route: 065
     Dates: start: 20010101

REACTIONS (5)
  - ANAEMIA [None]
  - THROMBOCYTOPENIA [None]
  - BRONCHOPNEUMONIA [None]
  - PULMONARY OEDEMA [None]
  - CARDIAC FAILURE ACUTE [None]
